FAERS Safety Report 18673544 (Version 1)
Quarter: 2020Q4

REPORT INFORMATION
  Report Type: Spontaneous
  Country: US (occurrence: US)
  Receive Date: 20201228
  Receipt Date: 20201228
  Transmission Date: 20210114
  Serious: No
  Sender: FDA-Public Use
  Company Number: US-PFIZER INC-2020508976

PATIENT
  Age: 62 Year
  Sex: Female

DRUGS (1)
  1. GABAPENTIN. [Suspect]
     Active Substance: GABAPENTIN
     Indication: SCIATICA
     Dosage: 400 MG, 3X/DAY (1 CAPSULE, THREE TIMES A DAY BY MOUTH)
     Route: 048
     Dates: end: 202001

REACTIONS (2)
  - Herpes zoster [Unknown]
  - Off label use [Unknown]
